FAERS Safety Report 9062002 (Version 1)
Quarter: 2013Q1

REPORT INFORMATION
  Report Type: Spontaneous
  Country: US (occurrence: US)
  Receive Date: 20130204
  Receipt Date: 20130204
  Transmission Date: 20140127
  Serious: Yes (Other)
  Sender: FDA-Public Use
  Company Number: US-ELI_LILLY_AND_COMPANY-US201301009886

PATIENT
  Sex: Female

DRUGS (3)
  1. CYMBALTA [Suspect]
     Indication: DEPRESSION
     Dosage: 60 MG, UNKNOWN
     Route: 065
  2. CYMBALTA [Suspect]
     Dosage: 90 MG, UNKNOWN
     Route: 065
  3. CYMBALTA [Suspect]
     Dosage: 60 MG, UNKNOWN
     Route: 065

REACTIONS (4)
  - Intentional self-injury [Not Recovered/Not Resolved]
  - Self-injurious ideation [Unknown]
  - Incorrect dose administered [Unknown]
  - Feeling abnormal [Unknown]
